FAERS Safety Report 20417954 (Version 3)
Quarter: 2022Q1

REPORT INFORMATION
  Report Type: Spontaneous
  Country: BR (occurrence: BR)
  Receive Date: 20220202
  Receipt Date: 20220218
  Transmission Date: 20220423
  Serious: Yes (Other)
  Sender: FDA-Public Use
  Company Number: BR-TAKEDA-BR202015244

PATIENT
  Age: 30 Year
  Sex: Female

DRUGS (8)
  1. LISDEXAMFETAMINE DIMESYLATE [Suspect]
     Active Substance: LISDEXAMFETAMINE DIMESYLATE
     Indication: Attention deficit hyperactivity disorder
     Dosage: UNK
     Route: 065
     Dates: start: 20200430
  2. LISDEXAMFETAMINE DIMESYLATE [Suspect]
     Active Substance: LISDEXAMFETAMINE DIMESYLATE
     Dosage: 50 MILLIGRAM
     Route: 065
     Dates: end: 20200426
  3. LISDEXAMFETAMINE DIMESYLATE [Suspect]
     Active Substance: LISDEXAMFETAMINE DIMESYLATE
     Dosage: UNK
     Route: 065
     Dates: start: 20200427
  4. LISDEXAMFETAMINE DIMESYLATE [Suspect]
     Active Substance: LISDEXAMFETAMINE DIMESYLATE
     Dosage: UNK
     Route: 065
     Dates: start: 20200428
  5. LISDEXAMFETAMINE DIMESYLATE [Suspect]
     Active Substance: LISDEXAMFETAMINE DIMESYLATE
     Dosage: 70 MILLIGRAM
     Route: 065
  6. LISDEXAMFETAMINE DIMESYLATE [Suspect]
     Active Substance: LISDEXAMFETAMINE DIMESYLATE
     Dosage: 70 MILLIGRAM
     Route: 065
  7. LISDEXAMFETAMINE DIMESYLATE [Suspect]
     Active Substance: LISDEXAMFETAMINE DIMESYLATE
     Dosage: UNK
     Route: 065
  8. LISDEXAMFETAMINE DIMESYLATE [Suspect]
     Active Substance: LISDEXAMFETAMINE DIMESYLATE
     Dosage: 3 DOSAGE FORM
     Route: 065

REACTIONS (30)
  - Drug abuse [Unknown]
  - COVID-19 [Unknown]
  - Drug dependence [Unknown]
  - Loss of personal independence in daily activities [Unknown]
  - Muscle spasms [Unknown]
  - Somnolence [Unknown]
  - Fatigue [Unknown]
  - Drug ineffective [Unknown]
  - Therapeutic product effect decreased [Unknown]
  - Product physical issue [Unknown]
  - Abdominal pain upper [Unknown]
  - Dyspnoea [Unknown]
  - Headache [Unknown]
  - Abdominal distension [Unknown]
  - Fear [Unknown]
  - Weight increased [Unknown]
  - Therapy interrupted [Unknown]
  - Emotional distress [Unknown]
  - Product dose omission issue [Unknown]
  - Off label use [Unknown]
  - Product physical consistency issue [Unknown]
  - Extra dose administered [Unknown]
  - Poor quality product administered [Unknown]
  - Nervousness [Unknown]
  - Dysphemia [Unknown]
  - Anxiety [Unknown]
  - Irritability [Unknown]
  - Confusional state [Unknown]
  - Patient dissatisfaction with treatment [Unknown]
  - Discomfort [Unknown]

NARRATIVE: CASE EVENT DATE: 20200427
